FAERS Safety Report 17182261 (Version 1)
Quarter: 2019Q4

REPORT INFORMATION
  Report Type: Spontaneous
  Country: US (occurrence: US)
  Receive Date: 20191219
  Receipt Date: 20191219
  Transmission Date: 20200122
  Serious: No
  Sender: FDA-Public Use
  Company Number: US-BAUSCH-BL-2019-063216

PATIENT
  Age: 70 Year

DRUGS (1)
  1. ALTRENO [Suspect]
     Active Substance: TRETINOIN
     Indication: PRODUCT USED FOR UNKNOWN INDICATION
     Route: 065
     Dates: end: 201911

REACTIONS (2)
  - Skin exfoliation [Unknown]
  - Application site erythema [Unknown]
